FAERS Safety Report 22192054 (Version 1)
Quarter: 2023Q2

REPORT INFORMATION
  Report Type: Spontaneous
  Country: CN (occurrence: CN)
  Receive Date: 20230410
  Receipt Date: 20230410
  Transmission Date: 20230722
  Serious: Yes (Life-Threatening, Hospitalization)
  Sender: FDA-Public Use
  Company Number: CN-JNJFOC-20230405333

PATIENT
  Age: 51 Year
  Sex: Female
  Weight: 48 kg

DRUGS (1)
  1. SPORANOX [Suspect]
     Active Substance: ITRACONAZOLE
     Indication: Pneumonia
     Route: 048
     Dates: start: 20230324, end: 20230325

REACTIONS (2)
  - Hepatic function abnormal [Not Recovered/Not Resolved]
  - Hypogeusia [Not Recovered/Not Resolved]

NARRATIVE: CASE EVENT DATE: 20230325
